FAERS Safety Report 15951774 (Version 4)
Quarter: 2019Q4

REPORT INFORMATION
  Report Type: Report from Study
  Country: JP (occurrence: JP)
  Receive Date: 20190211
  Receipt Date: 20191217
  Transmission Date: 20200122
  Serious: Yes (Other)
  Sender: FDA-Public Use
  Company Number: JP-INCYTE CORPORATION-2019IN001029

PATIENT

DRUGS (8)
  1. JAKAVI [Suspect]
     Active Substance: RUXOLITINIB
     Indication: POLYCYTHAEMIA VERA
     Dosage: 10 MG, QD
     Route: 048
     Dates: start: 20170120, end: 20170125
  2. JAKAVI [Suspect]
     Active Substance: RUXOLITINIB
     Dosage: 20 MG, QD
     Route: 048
     Dates: start: 20170126, end: 20181128
  3. JAKAVI [Suspect]
     Active Substance: RUXOLITINIB
     Dosage: 15 MG, BID
     Route: 048
     Dates: start: 20181129
  4. HYDREA [Suspect]
     Active Substance: HYDROXYUREA
     Dosage: 143 MG
     Route: 048
     Dates: start: 20170619, end: 20180704
  5. HYDREA [Suspect]
     Active Substance: HYDROXYUREA
     Dosage: 71 MG
     Route: 048
     Dates: start: 20180705, end: 20180823
  6. HYDREA [Suspect]
     Active Substance: HYDROXYUREA
     Indication: PRODUCT USED FOR UNKNOWN INDICATION
     Dosage: 1500 MG
     Route: 048
     Dates: end: 20170125
  7. HYDREA [Suspect]
     Active Substance: HYDROXYUREA
     Dosage: 500 MG
     Route: 048
     Dates: start: 20170126, end: 20170202
  8. HYDREA [Suspect]
     Active Substance: HYDROXYUREA
     Dosage: 250 MG
     Route: 048
     Dates: start: 20170612, end: 20170618

REACTIONS (2)
  - Myelofibrosis [Not Recovered/Not Resolved]
  - Bone marrow failure [Not Recovered/Not Resolved]

NARRATIVE: CASE EVENT DATE: 20170202
